FAERS Safety Report 18596146 (Version 2)
Quarter: 2022Q2

REPORT INFORMATION
  Report Type: Spontaneous
  Country: TN (occurrence: MA)
  Receive Date: 20201209
  Receipt Date: 20220613
  Transmission Date: 20220721
  Serious: Yes (Other)
  Sender: FDA-Public Use
  Company Number: 2018SE31650

PATIENT
  Age: 60 Year
  Sex: Female
  Weight: 60 kg

DRUGS (7)
  1. FASLODEX [Suspect]
     Active Substance: FULVESTRANT
     Indication: Vomiting
     Dosage: 250.0MG UNKNOWN
     Route: 030
     Dates: start: 20171221, end: 20180219
  2. FASLODEX [Suspect]
     Active Substance: FULVESTRANT
     Indication: Vomiting
     Dosage: UNKNOWN
     Route: 030
  3. FASLODEX [Suspect]
     Active Substance: FULVESTRANT
     Indication: Vomiting
     Dosage: UNKNOWN
     Route: 030
  4. FASLODEX [Suspect]
     Active Substance: FULVESTRANT
     Indication: Vomiting
     Route: 030
  5. FASLODEX [Suspect]
     Active Substance: FULVESTRANT
     Indication: Vomiting
     Route: 030
  6. PROPRANOLOL HYDROCHLORIDE [Concomitant]
     Active Substance: PROPRANOLOL HYDROCHLORIDE
     Indication: Palpitations
     Dosage: 1/4 TABLET SINCE MORE THAN 10 YEARS AGO
  7. ZOMETA [Concomitant]
     Active Substance: ZOLEDRONIC ACID
     Indication: Metastases to bone
     Dosage: 4.0MG UNKNOWN
     Route: 042
     Dates: start: 201605

REACTIONS (3)
  - Breast cancer metastatic [Unknown]
  - Vomiting [Unknown]
  - Female sexual dysfunction [Unknown]
